FAERS Safety Report 15468461 (Version 2)
Quarter: 2019Q1

REPORT INFORMATION
  Report Type: Report from Study
  Country: US (occurrence: US)
  Receive Date: 20181005
  Receipt Date: 20190107
  Transmission Date: 20190417
  Serious: Yes (Death, Hospitalization)
  Sender: FDA-Public Use
  Company Number: PHEH2018US041709

PATIENT
  Sex: Male
  Weight: 68.43 kg

DRUGS (1)
  1. ENTRESTO [Suspect]
     Active Substance: SACUBITRIL\VALSARTAN
     Indication: PRODUCT USED FOR UNKNOWN INDICATION
     Dosage: 50 MG (24 MG OF SACUBITRIL, 26 MG OF VALSARTAN) UNK
     Route: 048

REACTIONS (2)
  - Ventricular tachycardia [Fatal]
  - Hypokalaemia [Fatal]
